FAERS Safety Report 5710559-X (Version None)
Quarter: 2008Q2

REPORT INFORMATION
  Report Type: 
  Country: None (occurrence: None)
  Receive Date: 20080415
  Receipt Date: 20080403
  Transmission Date: 20081010
  Serious: Yes (Hospitalization, Other)
  Sender: FDA-Public Use
  Company Number: 233199J08USA

PATIENT
  Age: 31 Year
  Sex: Female

DRUGS (7)
  1. REBIF [Suspect]
     Indication: MULTIPLE SCLEROSIS
     Dosage: 44 MCG, 3 IN 1 WEEKS, SUBCUTANEOUS
     Route: 058
     Dates: start: 20061019
  2. BIRTH CONTROL PILLS (ORAL CONTRACEPTIVE NOS) [Suspect]
     Dosage: ORAL
     Route: 048
     Dates: start: 20070101, end: 20080101
  3. GABAPENTIN [Concomitant]
  4. DILANTIN [Concomitant]
  5. MIDRIN (MIDRID) [Concomitant]
  6. ULTRAM [Concomitant]
  7. SOLU-MEDROL [Concomitant]

REACTIONS (8)
  - ABORTION SPONTANEOUS [None]
  - DEEP VEIN THROMBOSIS [None]
  - DRUG DOSE OMISSION [None]
  - DRUG EXPOSURE DURING PREGNANCY [None]
  - INCORRECT DOSE ADMINISTERED [None]
  - OPTIC NEURITIS [None]
  - PREGNANCY [None]
  - TREATMENT NONCOMPLIANCE [None]
